FAERS Safety Report 17275699 (Version 5)
Quarter: 2020Q2

REPORT INFORMATION
  Report Type: Spontaneous
  Country: JP (occurrence: JP)
  Receive Date: 20200116
  Receipt Date: 20200408
  Transmission Date: 20200713
  Serious: Yes (Hospitalization, Other)
  Sender: FDA-Public Use
  Company Number: JP-GLAXOSMITHKLINE-JP2020005152

PATIENT
  Age: 82 Year
  Sex: Male

DRUGS (5)
  1. DONEPEZIL HYDROCHLORIDE OD [Concomitant]
     Active Substance: DONEPEZIL HYDROCHLORIDE
     Dosage: 5 MG, QD
  2. FP-OD TABLET [Concomitant]
     Dosage: 1 DF, QD
  3. REQUIP [Suspect]
     Active Substance: ROPINIROLE HYDROCHLORIDE
     Indication: PARKINSON^S DISEASE
     Dosage: 2 MG, QD
     Route: 048
     Dates: end: 20200110
  4. DOPACOL [Concomitant]
     Active Substance: CARBIDOPA\LEVODOPA
     Dosage: 2 DF, QD
  5. COMTAN [Concomitant]
     Active Substance: ENTACAPONE
     Dosage: 100 MG, QD

REACTIONS (2)
  - Dysphagia [Not Recovered/Not Resolved]
  - Pneumonia [Recovered/Resolved]

NARRATIVE: CASE EVENT DATE: 20200110
